FAERS Safety Report 12509691 (Version 1)
Quarter: 2016Q2

REPORT INFORMATION
  Report Type: Spontaneous
  Country: GB (occurrence: GB)
  Receive Date: 20160629
  Receipt Date: 20160629
  Transmission Date: 20160815
  Serious: Yes (Other)
  Sender: FDA-Public Use
  Company Number: GB-WATSON-2016-13913

PATIENT
  Age: 43 Year
  Sex: Female
  Weight: 76.2 kg

DRUGS (2)
  1. ZOLPIDEM [Concomitant]
     Active Substance: ZOLPIDEM\ZOLPIDEM TARTRATE
     Indication: PRODUCT USED FOR UNKNOWN INDICATION
     Dosage: UNK
     Route: 065
  2. NAPROXEN (UNKNOWN) [Suspect]
     Active Substance: NAPROXEN
     Indication: INFLAMMATION
     Dosage: 250 MG, UNK
     Route: 048
     Dates: start: 20160602, end: 20160608

REACTIONS (1)
  - Vision blurred [Recovering/Resolving]

NARRATIVE: CASE EVENT DATE: 20160602
